FAERS Safety Report 20807112 (Version 3)
Quarter: 2022Q2

REPORT INFORMATION
  Report Type: Spontaneous
  Country: CA (occurrence: CA)
  Receive Date: 20220510
  Receipt Date: 20220606
  Transmission Date: 20220721
  Serious: Yes (Other)
  Sender: FDA-Public Use
  Company Number: CA-CELLTRION INC.-2021CA019210

PATIENT

DRUGS (4)
  1. INFLECTRA [Suspect]
     Active Substance: INFLIXIMAB-DYYB
     Indication: Crohn^s disease
     Dosage: 5 MG/KG Q 0, 2, 6 THEN EVERY 8 WEEKS; DOSE - 427.5 MG OR 5 MG/KG
     Route: 042
     Dates: start: 20211025
  2. INFLECTRA [Suspect]
     Active Substance: INFLIXIMAB-DYYB
     Dosage: 5 MG/KG Q 0, 2, 6 THEN EVERY 8 WEEKS; DOSE - 427.5 MG OR 5 MG/KG
     Route: 042
     Dates: start: 20211209
  3. INFLECTRA [Suspect]
     Active Substance: INFLIXIMAB-DYYB
     Dosage: 5 MG/KG Q 0, 2, 6 THEN EVERY 8 WEEKS; DOSE - 427.5 MG OR 5 MG/KG
     Route: 042
     Dates: start: 20220202
  4. INFLECTRA [Suspect]
     Active Substance: INFLIXIMAB-DYYB
     Dosage: 5 MG/KG Q 0, 2, 6 THEN EVERY 8 WEEKS; DOSE - 427.5 MG OR 5 MG/KG
     Route: 042
     Dates: start: 20220427

REACTIONS (7)
  - Gastrointestinal disorder [Unknown]
  - Abscess [Unknown]
  - Infusion site pain [Unknown]
  - Fistula [Unknown]
  - Condition aggravated [Not Recovered/Not Resolved]
  - Proctalgia [Unknown]
  - Infection [Unknown]

NARRATIVE: CASE EVENT DATE: 20211209
